FAERS Safety Report 22531536 (Version 1)
Quarter: 2023Q2

REPORT INFORMATION
  Report Type: Report from Study
  Country: PE (occurrence: PE)
  Receive Date: 20230607
  Receipt Date: 20230607
  Transmission Date: 20230721
  Serious: Yes (Other)
  Sender: FDA-Public Use
  Company Number: PE-BAYER-2023A075263

PATIENT
  Age: 64 Year
  Sex: Male

DRUGS (1)
  1. STIVARGA [Suspect]
     Active Substance: REGORAFENIB
     Indication: Colorectal cancer metastatic
     Dosage: 1 PILL IN THE MORNING AND 2 PILLS AT NIGHT WITH A TOTAL OF 40 MG.
     Dates: start: 20230104, end: 202305

REACTIONS (2)
  - Renal injury [None]
  - Drug ineffective [None]
